FAERS Safety Report 7270513-6 (Version None)
Quarter: 2011Q1

REPORT INFORMATION
  Report Type: 
  Country: None (occurrence: None)
  Receive Date: 20110124
  Receipt Date: 20110124
  Transmission Date: 20110831
  Serious: No
  Sender: FDA-Public Use
  Company Number: None

PATIENT
  Age: 71 Year
  Sex: Female

DRUGS (1)
  1. NITROGLYCERIN SL TABL 100S 0.4; 1/150GR GLENMARK [Suspect]
     Indication: ANGINA PECTORIS
     Dosage: SL
     Route: 060

REACTIONS (1)
  - PRODUCT SOLUBILITY ABNORMAL [None]
